FAERS Safety Report 13636262 (Version 1)
Quarter: 2017Q2

REPORT INFORMATION
  Report Type: Spontaneous
  Country: US (occurrence: US)
  Receive Date: 20170531
  Receipt Date: 20170531
  Transmission Date: 20170830
  Serious: No
  Sender: FDA-Public Use
  Company Number: US-ASTELLAS-1802333

PATIENT
  Sex: Male

DRUGS (11)
  1. TARCEVA [Suspect]
     Active Substance: ERLOTINIB HYDROCHLORIDE
     Indication: LUNG NEOPLASM MALIGNANT
     Route: 048
     Dates: start: 20160715
  2. CITALOPRAM HYDROBROMIDE. [Concomitant]
     Active Substance: CITALOPRAM HYDROBROMIDE
  3. METAMUCIL [Concomitant]
     Active Substance: PLANTAGO SEED
  4. TERAZOSIN HCL [Concomitant]
     Active Substance: TERAZOSIN HYDROCHLORIDE
  5. TARCEVA [Suspect]
     Active Substance: ERLOTINIB HYDROCHLORIDE
     Route: 048
     Dates: start: 20160715
  6. RETAINE CMC [Concomitant]
  7. PANTOPRAZOLE SODIUM. [Concomitant]
     Active Substance: PANTOPRAZOLE SODIUM
  8. ERYTHROMYCIN. [Concomitant]
     Active Substance: ERYTHROMYCIN
  9. ALEVE [Concomitant]
     Active Substance: NAPROXEN SODIUM
  10. DIAZEPAM. [Concomitant]
     Active Substance: DIAZEPAM
     Route: 065
  11. CALCIUM D3 [Concomitant]
     Active Substance: CALCIUM\CHOLECALCIFEROL

REACTIONS (3)
  - Pruritus [Unknown]
  - Decreased appetite [Unknown]
  - Rash [Unknown]
